FAERS Safety Report 8335338-9 (Version None)
Quarter: 2012Q2

REPORT INFORMATION
  Report Type: 
  Country: None (occurrence: None)
  Receive Date: 20120503
  Receipt Date: 20120425
  Transmission Date: 20120825
  Serious: Yes (Congenital Anomaly)
  Sender: FDA-Public Use
  Company Number: US-FRI-1000030101

PATIENT
  Sex: Male

DRUGS (1)
  1. LEXAPRO [Suspect]
     Route: 064
     Dates: end: 20090423

REACTIONS (3)
  - CONGENITAL SPINAL CORD ANOMALY [None]
  - MICROCEPHALY [None]
  - CONGENITAL ANOMALY [None]
